FAERS Safety Report 17278048 (Version 1)
Quarter: 2020Q1

REPORT INFORMATION
  Report Type: Spontaneous
  Country: FR (occurrence: FR)
  Receive Date: 20200116
  Receipt Date: 20200116
  Transmission Date: 20200409
  Serious: Yes (Hospitalization, Other)
  Sender: FDA-Public Use
  Company Number: FR-MYLANLABS-2020M1004370

PATIENT
  Age: 25 Year
  Sex: Male
  Weight: 65 kg

DRUGS (20)
  1. ESMERON [Suspect]
     Active Substance: ROCURONIUM BROMIDE
     Indication: PRODUCT USED FOR UNKNOWN INDICATION
     Dosage: 70 MILLIGRAM, QD
     Route: 042
     Dates: start: 20190820, end: 20190820
  2. SODIUM CHLORIDE. [Suspect]
     Active Substance: SODIUM CHLORIDE
     Indication: PRODUCT USED FOR UNKNOWN INDICATION
     Dosage: 1519 MILLILITER
     Route: 042
     Dates: start: 20190820, end: 20190823
  3. GLUCOSE [Suspect]
     Active Substance: DEXTROSE
     Dosage: 3400 MILLILITER
     Route: 042
     Dates: start: 20190820, end: 20190823
  4. GLUCOSE [Suspect]
     Active Substance: DEXTROSE
     Dosage: 390 MILLILITER, QD
     Route: 042
     Dates: start: 20190823, end: 20190823
  5. CERNEVIT [Suspect]
     Active Substance: VITAMINS
     Indication: PRODUCT USED FOR UNKNOWN INDICATION
     Dosage: 1 LITER
     Route: 042
     Dates: start: 20190821, end: 20190823
  6. LOVENOX [Suspect]
     Active Substance: ENOXAPARIN SODIUM
     Indication: PRODUCT USED FOR UNKNOWN INDICATION
     Dosage: 1 DOSAGE FORM
     Route: 058
     Dates: start: 20190821, end: 20190822
  7. THERALENE [Concomitant]
     Active Substance: TRIMEPRAZINE
     Indication: DEPRESSION
     Dosage: 25 GTT DROPS (DROP (1/12 MILLILITRE))
     Route: 048
  8. AMLODIPINE [Concomitant]
     Active Substance: AMLODIPINE BESYLATE
     Indication: HYPERTENSION
     Dosage: 5 MILLIGRAM, QD
     Route: 048
  9. QUETIAPINE. [Concomitant]
     Active Substance: QUETIAPINE
     Indication: DEPRESSION
     Dosage: 800 MILLIGRAM, QD
     Route: 048
     Dates: start: 20190718
  10. GLYPRESSINE [Suspect]
     Active Substance: TERLIPRESSIN
     Indication: PRODUCT USED FOR UNKNOWN INDICATION
     Dosage: 143 MILLIGRAM
     Route: 042
     Dates: start: 20190820, end: 20190821
  11. INTRALIPIDE [Suspect]
     Active Substance: SOYBEAN OIL
     Indication: PRODUCT USED FOR UNKNOWN INDICATION
     Dosage: INCONNUE
     Route: 042
     Dates: start: 20190820, end: 20190823
  12. CHLORURE DE CALCIUM [Suspect]
     Active Substance: CALCIUM CHLORIDE
     Indication: PRODUCT USED FOR UNKNOWN INDICATION
     Dosage: INCONNUE
     Route: 042
     Dates: start: 20190820, end: 20190823
  13. EAU POUR PREPARATIONS INJECTABLES [Suspect]
     Active Substance: WATER
     Indication: PRODUCT USED FOR UNKNOWN INDICATION
     Dosage: 1453 MILLILITER
     Route: 042
     Dates: start: 20190820, end: 20190823
  14. FENTANYL. [Suspect]
     Active Substance: FENTANYL
     Indication: PRODUCT USED FOR UNKNOWN INDICATION
     Dosage: 2500 MICROGRAM
     Route: 042
     Dates: start: 20190821, end: 20190822
  15. CHLORURE DE POTASSIUM [Suspect]
     Active Substance: POTASSIUM CHLORIDE
     Indication: PRODUCT USED FOR UNKNOWN INDICATION
     Dosage: 31.75 GRAM
     Route: 042
     Dates: start: 20190820, end: 20190823
  16. GLUCOSE [Suspect]
     Active Substance: DEXTROSE
     Indication: PRODUCT USED FOR UNKNOWN INDICATION
     Dosage: 4420 MILLILITER
     Route: 042
     Dates: start: 20190820, end: 20190822
  17. TERLIPRESSINE /00692902/ [Suspect]
     Active Substance: TERLIPRESSIN
     Indication: PRODUCT USED FOR UNKNOWN INDICATION
     Dosage: INCONNUE
     Route: 042
     Dates: start: 20190820
  18. NORADRENALINE                      /00127501/ [Suspect]
     Active Substance: NOREPINEPHRINE
     Indication: PRODUCT USED FOR UNKNOWN INDICATION
     Dosage: INCONNUE
     Route: 042
     Dates: start: 20190820, end: 20190822
  19. LORMETAZEPAM [Concomitant]
     Active Substance: LORMETAZEPAM
     Indication: DEPRESSION
     Dosage: 2 MILLIGRAM, QD
     Route: 048
     Dates: start: 20190714
  20. SODIUM BICARBONATE. [Suspect]
     Active Substance: SODIUM BICARBONATE
     Indication: PRODUCT USED FOR UNKNOWN INDICATION
     Dosage: INCONNUE
     Route: 042
     Dates: start: 20190820

REACTIONS (3)
  - Suicide attempt [Unknown]
  - Thrombophlebitis superficial [Recovered/Resolved]
  - Toxicity to various agents [Unknown]

NARRATIVE: CASE EVENT DATE: 20190904
